FAERS Safety Report 23841684 (Version 2)
Quarter: 2024Q2

REPORT INFORMATION
  Report Type: Spontaneous
  Country: BR (occurrence: BR)
  Receive Date: 20240510
  Receipt Date: 20240606
  Transmission Date: 20240715
  Serious: Yes (Hospitalization, Other)
  Sender: FDA-Public Use
  Company Number: BR-UCBSA-2024022864

PATIENT
  Sex: Male
  Weight: 70 kg

DRUGS (2)
  1. KEPPRA [Suspect]
     Active Substance: LEVETIRACETAM
     Indication: Epilepsy
     Dosage: UNK 2 PILLS
     Route: 048
     Dates: start: 202312
  2. KEPPRA [Suspect]
     Active Substance: LEVETIRACETAM
     Dosage: UNK (1 G IN THE MORNING AND 1.5 G AT NIGHT, DAILY)
     Route: 048

REACTIONS (8)
  - Epilepsy [Unknown]
  - Fall [Unknown]
  - Head injury [Unknown]
  - Change in seizure presentation [Unknown]
  - Seizure [Unknown]
  - Vomiting [Unknown]
  - Incorrect dose administered [Unknown]
  - Product use issue [Unknown]

NARRATIVE: CASE EVENT DATE: 20240101
